FAERS Safety Report 6546162-1 (Version None)
Quarter: 2010Q1

REPORT INFORMATION
  Report Type: 
  Country: None (occurrence: None)
  Receive Date: 20100122
  Receipt Date: 20100112
  Transmission Date: 20100710
  Serious: Yes (Other)
  Sender: FDA-Public Use
  Company Number: AT-RANBAXY-2009RR-30256

PATIENT
  Age: 63 Year
  Sex: Male
  Weight: 105 kg

DRUGS (9)
  1. DIABETEX [Suspect]
     Dosage: 850 MG, QD
  2. CISPLATIN [Suspect]
     Indication: URETHRAL CANCER
  3. GEMCITABINE [Suspect]
     Indication: URETHRAL CANCER
  4. PIPERACILLIN AND TAZOBACTAM [Suspect]
     Route: 042
  5. LINEZOLID [Suspect]
     Indication: URINARY TRACT INFECTION STAPHYLOCOCCAL
  6. MEXALEN [Suspect]
     Dosage: 500 MG, TID
  7. ACECOMB [Suspect]
     Indication: HYPERTENSION
     Dosage: UNK
  8. NEXIUM [Suspect]
     Dosage: 40 MG, BID
  9. CARBOPLATIN [Suspect]
     Indication: URETHRAL CANCER

REACTIONS (2)
  - DRUG INTERACTION [None]
  - RENAL IMPAIRMENT [None]
